FAERS Safety Report 9406403 (Version 2)
Quarter: 2013Q3

REPORT INFORMATION
  Report Type: Report from Study
  Country: US (occurrence: US)
  Receive Date: 20130718
  Receipt Date: 20130726
  Transmission Date: 20140515
  Serious: Yes (Hospitalization)
  Sender: FDA-Public Use
  Company Number: US-ROCHE-1240039

PATIENT
  Sex: Male

DRUGS (12)
  1. PEGASYS [Suspect]
     Indication: HEPATITIS C
     Route: 058
     Dates: start: 201205
  2. COPEGUS [Suspect]
     Indication: HEPATITIS C
     Route: 048
  3. CELLCEPT [Suspect]
     Indication: IMMUNOSUPPRESSION
     Dosage: 500MG IN THE MORNING/250MG IN THE EVENING
     Route: 048
  4. CYCLOSPORINE [Concomitant]
     Route: 048
     Dates: start: 20110811
  5. SYNTHROID [Concomitant]
     Route: 048
  6. ASA [Concomitant]
     Route: 048
  7. HALAZEPAM [Concomitant]
     Route: 048
  8. PANTOPRAZOLE [Concomitant]
     Route: 048
  9. FOLIC ACID [Concomitant]
     Route: 048
  10. ARANEST [Concomitant]
  11. XANAX [Concomitant]
     Route: 048
  12. OXYCODONE [Concomitant]
     Dosage: EVERY 4-6 HOURS AS NEEDED
     Route: 048

REACTIONS (4)
  - Liver transplant rejection [Recovered/Resolved]
  - Blood creatinine increased [Recovered/Resolved]
  - Hepatitis C [Unknown]
  - Renal function test abnormal [Unknown]
